FAERS Safety Report 7554878-3 (Version None)
Quarter: 2011Q2

REPORT INFORMATION
  Report Type: 
  Country: None (occurrence: None)
  Receive Date: 20110615
  Receipt Date: 20110615
  Transmission Date: 20111010
  Serious: Yes (Hospitalization)
  Sender: FDA-Public Use
  Company Number: None

PATIENT
  Sex: Male
  Weight: 87.4 kg

DRUGS (2)
  1. SIROLIMUS [Concomitant]
  2. TARCEVA [Suspect]
     Dosage: 150 MG

REACTIONS (4)
  - PULMONARY EMBOLISM [None]
  - HYPOXIA [None]
  - DEEP VEIN THROMBOSIS [None]
  - DYSPNOEA [None]
